FAERS Safety Report 15269564 (Version 2)
Quarter: 2018Q4

REPORT INFORMATION
  Report Type: Report from Study
  Country: US (occurrence: US)
  Receive Date: 20180813
  Receipt Date: 20181024
  Transmission Date: 20190204
  Serious: No
  Sender: FDA-Public Use
  Company Number: US-AMGEN-USASL2018109659

PATIENT
  Age: 84 Year
  Sex: Female

DRUGS (1)
  1. ENBREL [Suspect]
     Active Substance: ETANERCEPT
     Indication: RHEUMATOID ARTHRITIS
     Dosage: 50 MG, QWK
     Route: 058
     Dates: end: 201808

REACTIONS (5)
  - Candida infection [Unknown]
  - Vulvovaginal mycotic infection [Unknown]
  - Urinary tract infection [Recovered/Resolved]
  - Bronchitis [Unknown]
  - Infection [Unknown]

NARRATIVE: CASE EVENT DATE: 2018
